FAERS Safety Report 17487833 (Version 2)
Quarter: 2020Q1

REPORT INFORMATION
  Report Type: Spontaneous
  Country: DE (occurrence: DE)
  Receive Date: 20200303
  Receipt Date: 20200316
  Transmission Date: 20200409
  Serious: Yes (Other)
  Sender: FDA-Public Use
  Company Number: DE-PFIZER INC-2020090621

PATIENT
  Age: 31 Year
  Sex: Female
  Weight: 80 kg

DRUGS (1)
  1. CYTOTEC [Suspect]
     Active Substance: MISOPROSTOL
     Indication: LABOUR INDUCTION
     Dosage: 100 UG, UNK (50 + 50 IN A TIME FRAME OF 9 HOURS)
     Route: 048
     Dates: start: 20091111, end: 20091111

REACTIONS (6)
  - Off label use [Unknown]
  - Bradycardia [Unknown]
  - Product use in unapproved indication [Unknown]
  - Premature separation of placenta [Unknown]
  - Labour augmentation [Unknown]
  - Uterine tachysystole [Unknown]

NARRATIVE: CASE EVENT DATE: 20091111
